FAERS Safety Report 14102706 (Version 1)
Quarter: 2017Q4

REPORT INFORMATION
  Report Type: Spontaneous
  Country: PH (occurrence: PH)
  Receive Date: 20171018
  Receipt Date: 20171018
  Transmission Date: 20180321
  Serious: Yes (Other)
  Sender: FDA-Public Use
  Company Number: PH-009507513-1710PHL007357

PATIENT

DRUGS (1)
  1. ZERBAXA [Suspect]
     Active Substance: CEFTOLOZANE SULFATE\TAZOBACTAM SODIUM
     Dosage: UNK

REACTIONS (2)
  - Pathogen resistance [Unknown]
  - Product use in unapproved indication [Unknown]
